FAERS Safety Report 18490741 (Version 1)
Quarter: 2020Q4

REPORT INFORMATION
  Report Type: Spontaneous
  Country: NL (occurrence: DE)
  Receive Date: 20201111
  Receipt Date: 20201111
  Transmission Date: 20210114
  Serious: Yes (Hospitalization)
  Sender: FDA-Public Use
  Company Number: DE-FRESENIUS KABI-FK202011838

PATIENT
  Age: 67 Year
  Sex: Male

DRUGS (8)
  1. PANTOPRAZOLE [Concomitant]
     Active Substance: PANTOPRAZOLE
     Indication: PRODUCT USED FOR UNKNOWN INDICATION
     Dosage: 40 MG, 1-0-0-0, TABLETS?PHARMACEUTICAL DOSE FORM (FREE TEXT): TABLET
     Route: 065
  2. EDOXABAN TOSILATE [Concomitant]
     Active Substance: EDOXABAN TOSYLATE
     Indication: PRODUCT USED FOR UNKNOWN INDICATION
     Dosage: 60 MG, 1-0-0-0, TABLETS?PHARMACEUTICAL DOSE FORM (FREE TEXT): TABLET
     Route: 065
  3. PREDNISOLONE. [Suspect]
     Active Substance: PREDNISOLONE
     Indication: PRODUCT USED FOR UNKNOWN INDICATION
     Dosage: 10 MG, 0.5-0-0-0, TABLETS?PHARMACEUTICAL DOSE FORM (FREE TEXT): TABLET
     Route: 065
  4. COLECALCIFEROL/CALCIUM [Concomitant]
     Indication: PRODUCT USED FOR UNKNOWN INDICATION
     Dosage: 600|0.01 MG, 1-0-0-0, EFFERVESCENT TABLETS?PHARMACEUTICAL DOSE FORM (FREE TEXT): EFFERVESCENT TABLET
     Route: 065
  5. METAMIZOLE [Concomitant]
     Active Substance: METAMIZOLE
     Indication: PRODUCT USED FOR UNKNOWN INDICATION
     Dosage: 500 MG, AS NEEDED, TABLETS?PHARMACEUTICAL DOSE FORM (FREE TEXT): TABLET
     Route: 065
  6. FUROSEMIDE. [Concomitant]
     Active Substance: FUROSEMIDE
     Indication: PRODUCT USED FOR UNKNOWN INDICATION
     Dosage: 40 MG, 1-0-0-0, TABLETS?PHARMACEUTICAL DOSE FORM (FREE TEXT): TABLET
     Route: 065
  7. GEMCITABINE. [Suspect]
     Active Substance: GEMCITABINE
     Indication: PRODUCT USED FOR UNKNOWN INDICATION
     Route: 065
  8. SPIRONOLACTONE. [Concomitant]
     Active Substance: SPIRONOLACTONE
     Indication: PRODUCT USED FOR UNKNOWN INDICATION
     Dosage: 50 MG, 1-0-0-0, TABLETS?PHARMACEUTICAL DOSE FORM (FREE TEXT): TABLET
     Route: 065

REACTIONS (3)
  - Pyrexia [Unknown]
  - Escherichia bacteraemia [Unknown]
  - Chills [Unknown]
